FAERS Safety Report 12315957 (Version 1)
Quarter: 2016Q2

REPORT INFORMATION
  Report Type: Report from Study
  Country: US (occurrence: US)
  Receive Date: 20160428
  Receipt Date: 20160428
  Transmission Date: 20160815
  Serious: Yes (Other)
  Sender: FDA-Public Use
  Company Number: US-ABBVIE-16P-163-1588639-00

PATIENT
  Age: 27 Year
  Sex: Female

DRUGS (3)
  1. PREZISTA [Suspect]
     Active Substance: DARUNAVIR ETHANOLATE
     Indication: ANTIRETROVIRAL THERAPY
     Route: 048
     Dates: start: 20160113
  2. TRUVADA [Suspect]
     Active Substance: EMTRICITABINE\TENOFOVIR DISOPROXIL FUMARATE
     Indication: ANTIRETROVIRAL THERAPY
     Route: 048
     Dates: start: 20160113
  3. NORVIR [Suspect]
     Active Substance: RITONAVIR
     Indication: ANTIRETROVIRAL THERAPY
     Route: 048
     Dates: start: 20160113

REACTIONS (4)
  - Asthma [Unknown]
  - Preterm premature rupture of membranes [Unknown]
  - Exposure during pregnancy [Unknown]
  - Placental disorder [Unknown]
